FAERS Safety Report 7875612-3 (Version None)
Quarter: 2011Q4

REPORT INFORMATION
  Report Type: 
  Country: None (occurrence: None)
  Receive Date: 20111031
  Receipt Date: 20111020
  Transmission Date: 20120403
  Serious: Yes (Other)
  Sender: FDA-Public Use
  Company Number: US-MYLANLABS-2011S1022077

PATIENT
  Sex: Male
  Weight: 0.43 kg

DRUGS (5)
  1. LAMIVUDINE + ZIDOVUDINE [Suspect]
     Route: 064
  2. ZIDOVUDINE [Suspect]
     Route: 064
  3. RITONAVIR [Suspect]
     Route: 064
  4. LOPINAVIR/RITONAVIR [Suspect]
     Route: 064
  5. DARUNAVIR ETHANOLATE [Suspect]
     Route: 064

REACTIONS (3)
  - PREMATURE BABY [None]
  - MATERNAL EXPOSURE DURING PREGNANCY [None]
  - FOETAL GROWTH RESTRICTION [None]
